FAERS Safety Report 5299182-1 (Version None)
Quarter: 2007Q2

REPORT INFORMATION
  Report Type: 
  Country: None (occurrence: None)
  Receive Date: 20070410
  Receipt Date: 20061107
  Transmission Date: 20071010
  Serious: Yes (Death)
  Sender: FDA-Public Use
  Company Number: BDI-008768

PATIENT
  Age: 48 Year
  Sex: Female

DRUGS (5)
  1. ISOVUE-300 [Suspect]
     Indication: COMPUTERISED TOMOGRAM
     Dosage: 130 ML ONCE SY
     Dates: start: 20061019, end: 20061019
  2. ISOVUE-300 [Suspect]
     Indication: NODULE
     Dosage: 130 ML ONCE SY
     Dates: start: 20061019, end: 20061019
  3. FLOVENT [Concomitant]
  4. ALBUTEROL [Concomitant]
  5. METHYLPREDNISOLONE 16MG TAB [Concomitant]

REACTIONS (2)
  - DYSPNOEA [None]
  - UNRESPONSIVE TO STIMULI [None]
